FAERS Safety Report 6355764-7 (Version None)
Quarter: 2009Q3

REPORT INFORMATION
  Report Type: 
  Country: None (occurrence: None)
  Receive Date: 20090911
  Receipt Date: 20090911
  Transmission Date: 20100115
  Serious: Yes (Other)
  Sender: FDA-Public Use
  Company Number: None

PATIENT
  Age: 71 Year
  Sex: Female
  Weight: 50.3493 kg

DRUGS (1)
  1. CIPRO [Suspect]
     Indication: FOOD POISONING
     Dosage: IV ONCE
     Route: 042
     Dates: start: 20090725

REACTIONS (1)
  - NAUSEA [None]
